FAERS Safety Report 4865671-4 (Version None)
Quarter: 2005Q4

REPORT INFORMATION
  Report Type: 
  Country: None (occurrence: None)
  Receive Date: 20051220
  Receipt Date: 20051207
  Transmission Date: 20060501
  Serious: Yes (Hospitalization)
  Sender: FDA-Public Use
  Company Number: TPA2005A01311

PATIENT
  Age: 68 Year
  Sex: Male
  Weight: 108.4097 kg

DRUGS (12)
  1. PIOGLITAZONE HCL [Suspect]
     Indication: GLUCOSE TOLERANCE IMPAIRED
     Dosage: SEE IMAGE
     Route: 048
     Dates: start: 20050217, end: 20051006
  2. PIOGLITAZONE HCL [Suspect]
     Indication: GLUCOSE TOLERANCE IMPAIRED
     Dosage: SEE IMAGE
     Route: 048
     Dates: start: 20051014
  3. SULFAMETHOXAZOLE 800/TRIMETHOPRIM 160 (BACTRIM) [Concomitant]
  4. INDOMETHACIN [Concomitant]
  5. ALLOPURINOL [Concomitant]
  6. ATENOLOL [Concomitant]
  7. LOVASTATIN [Concomitant]
  8. ASPIRIN [Concomitant]
  9. VITAMIN E/SELENIUM OR PLACEBO STUDY MEDICATION (ALL OTHER THERAPEUTIC [Concomitant]
  10. SELECT MULTIVITAMIN (MULTIVITAMINS) [Concomitant]
  11. RIFAMPICIN [Concomitant]
  12. UNKNOWN MEDICATION FOR GASTRIC REFLUX [Concomitant]

REACTIONS (4)
  - COLON CANCER [None]
  - COLONIC POLYP [None]
  - DIVERTICULUM INTESTINAL [None]
  - OCCULT BLOOD POSITIVE [None]
